FAERS Safety Report 21020636 (Version 1)
Quarter: 2022Q2

REPORT INFORMATION
  Report Type: Spontaneous
  Country: ES (occurrence: ES)
  Receive Date: 20220629
  Receipt Date: 20220629
  Transmission Date: 20220720
  Serious: Yes (Hospitalization)
  Sender: FDA-Public Use
  Company Number: None

PATIENT
  Age: 79 Year
  Sex: Male

DRUGS (11)
  1. METFORMIN HYDROCHLORIDE [Suspect]
     Active Substance: METFORMIN HYDROCHLORIDE
     Indication: Product used for unknown indication
     Dosage: 1.000 MG 30 COMPRIMIDOS, 1 COMPRIMIDO CADA 12 HORAS
     Route: 065
     Dates: start: 20220304, end: 20220310
  2. DAPAGLIFLOZIN PROPANEDIOL\METFORMIN HYDROCHLORIDE [Suspect]
     Active Substance: DAPAGLIFLOZIN PROPANEDIOL\METFORMIN HYDROCHLORIDE
     Indication: Product used for unknown indication
     Dosage: 1 COMPRIMIDO CADA 12 HORAS (5 MG/850 MG)
     Route: 065
     Dates: start: 20220317, end: 20220321
  3. METFORMIN HYDROCHLORIDE [Suspect]
     Active Substance: METFORMIN HYDROCHLORIDE
     Indication: Diabetes mellitus
     Dosage: 1 COMPRIMIDO CADA 12 HORAS
     Route: 065
     Dates: start: 20161114, end: 20220304
  4. DUTASTERIDE\TAMSULOSIN [Concomitant]
     Active Substance: DUTASTERIDE\TAMSULOSIN
     Indication: Benign prostatic hyperplasia
     Dosage: 0,5 MG/0,4 MG CAPSULAS DURAS (1 CAPSULA)
     Dates: start: 20180621
  5. LORAZEPAM [Concomitant]
     Active Substance: LORAZEPAM
     Indication: Anxiety
     Dosage: 1 COMPRIMIDO CADA DIA
     Dates: start: 20210913
  6. LINAGLIPTIN [Concomitant]
     Active Substance: LINAGLIPTIN
     Indication: Product used for unknown indication
     Dosage: 1 COMPRIMIDO CADA DIA
     Dates: start: 20210913
  7. CLOPIDOGREL [Concomitant]
     Active Substance: CLOPIDOGREL BISULFATE
     Indication: Transient ischaemic attack
     Dosage: 1 COMPRIMIDO CADA DIA
     Dates: start: 20220225
  8. BRINTELLIX [Concomitant]
     Active Substance: VORTIOXETINE HYDROBROMIDE
     Indication: Anxiety
     Dosage: 1 COMPRIMIDO CADA D?A
     Dates: start: 20210913
  9. PANTOPRAZOLE [Concomitant]
     Active Substance: PANTOPRAZOLE
     Indication: Product used for unknown indication
     Dosage: 1 COMPRIMIDO CADA DIA
  10. FUROSEMIDE [Concomitant]
     Active Substance: FUROSEMIDE
     Indication: Oedema
     Dosage: 1 COMPRIMIDO CADA DIA
     Dates: start: 20191021
  11. HYDROCHLOROTHIAZIDE\OLMESARTAN MEDOXOMIL [Concomitant]
     Active Substance: HYDROCHLOROTHIAZIDE\OLMESARTAN MEDOXOMIL
     Indication: Hypertension
     Dosage: 1 COMPRIMIDO CADA DIA (40 MG/12,5 MG)

REACTIONS (3)
  - Hyperkalaemia [Recovering/Resolving]
  - Acute kidney injury [Recovered/Resolved]
  - Metabolic acidosis [Recovering/Resolving]

NARRATIVE: CASE EVENT DATE: 20220318
